FAERS Safety Report 9482333 (Version 1)
Quarter: 2013Q3

REPORT INFORMATION
  Report Type: Spontaneous
  Country: GB (occurrence: GB)
  Receive Date: 20130828
  Receipt Date: 20130828
  Transmission Date: 20140515
  Serious: Yes (Other)
  Sender: FDA-Public Use
  Company Number: GB-ASTRAZENECA-2013SE64296

PATIENT
  Age: 66 Year
  Sex: Male
  Weight: 125 kg

DRUGS (14)
  1. CRESTOR [Suspect]
     Route: 048
     Dates: start: 20130424
  2. ALLOPURINOL [Concomitant]
     Dates: start: 20130308, end: 20130531
  3. ALLOPURINOL [Concomitant]
     Dates: start: 20130603
  4. ASPIRIN [Concomitant]
     Dates: start: 20130308, end: 20130531
  5. ASPIRIN [Concomitant]
     Dates: start: 20130603
  6. BISOPROLOL [Concomitant]
     Dates: start: 20130424, end: 20130619
  7. BISOPROLOL [Concomitant]
     Dates: start: 20130725
  8. CIPROFIBRATE [Concomitant]
     Dates: start: 20130308
  9. CLOPIDOGREL [Concomitant]
     Dates: start: 20130424, end: 20130619
  10. GLYCERYL TRINITRATE [Concomitant]
     Dates: start: 20130424, end: 20130522
  11. IRBESARTAN [Concomitant]
     Dates: start: 20130424
  12. LANSOPRAZOLE [Concomitant]
     Dates: start: 20130424, end: 20130619
  13. LANSOPRAZOLE [Concomitant]
     Dates: start: 20130725
  14. PARACETAMOL [Concomitant]
     Dates: start: 20130424, end: 20130508

REACTIONS (1)
  - Dyspnoea [Recovered/Resolved]
